FAERS Safety Report 6579584-3 (Version None)
Quarter: 2010Q1

REPORT INFORMATION
  Report Type: 
  Country: None (occurrence: None)
  Receive Date: 20100212
  Receipt Date: 20100205
  Transmission Date: 20100710
  Serious: Yes (Hospitalization)
  Sender: FDA-Public Use
  Company Number: US-PFIZER INC-2010015163

PATIENT
  Age: 69 Year
  Sex: Male
  Weight: 108.1 kg

DRUGS (6)
  1. IRINOTECAN HCL [Suspect]
     Indication: OESOPHAGEAL ADENOCARCINOMA
     Dosage: 348 MG, BIWEEKLY
     Route: 042
     Dates: start: 20100127, end: 20100127
  2. SUNITINIB MALATE [Suspect]
     Indication: OESOPHAGEAL ADENOCARCINOMA
     Dosage: 25 MG, 1X/DAY
     Route: 048
     Dates: start: 20100128, end: 20100202
  3. LEUCOVORIN CALCIUM [Suspect]
     Indication: OESOPHAGEAL ADENOCARCINOMA
     Dosage: 928 MG, BIWEEKLY
     Route: 042
     Dates: start: 20100127, end: 20100127
  4. 5-FU [Suspect]
     Indication: OESOPHAGEAL ADENOCARCINOMA
     Dosage: 742 MG, BIWEEKLY
     Route: 042
     Dates: start: 20100127, end: 20100127
  5. 5-FU [Suspect]
     Dosage: 4640 MG, CIVI
     Route: 042
     Dates: start: 20100127, end: 20100129
  6. ACETAMINOPHEN [Concomitant]

REACTIONS (7)
  - CONFUSIONAL STATE [None]
  - DISORIENTATION [None]
  - FALL [None]
  - FLANK PAIN [None]
  - HYPOTENSION [None]
  - RIB FRACTURE [None]
  - SYNCOPE [None]
